FAERS Safety Report 10594459 (Version 2)
Quarter: 2014Q4

REPORT INFORMATION
  Report Type: Spontaneous
  Country: SE (occurrence: SE)
  Receive Date: 20141119
  Receipt Date: 20141127
  Transmission Date: 20150529
  Serious: No
  Sender: FDA-Public Use
  Company Number: SE-ROCHE-1492661

PATIENT
  Age: 21 Year
  Sex: Female

DRUGS (4)
  1. KETOPROFEN. [Concomitant]
     Active Substance: KETOPROFEN
     Indication: JUVENILE IDIOPATHIC ARTHRITIS
     Route: 048
     Dates: start: 20140310
  2. METOJECT [Concomitant]
     Active Substance: METHOTREXATE SODIUM
     Indication: JUVENILE IDIOPATHIC ARTHRITIS
     Route: 058
     Dates: start: 20121113
  3. PREDNISOLON [Concomitant]
     Active Substance: PREDNISOLONE
     Indication: JUVENILE IDIOPATHIC ARTHRITIS
     Route: 048
     Dates: start: 20130805
  4. ROACTEMRA [Suspect]
     Active Substance: TOCILIZUMAB
     Indication: JUVENILE IDIOPATHIC ARTHRITIS
     Route: 058
     Dates: start: 20141001

REACTIONS (3)
  - Pruritus [Recovered/Resolved]
  - Rash [Recovered/Resolved]
  - Mass [Recovered/Resolved]

NARRATIVE: CASE EVENT DATE: 20141008
